FAERS Safety Report 20582076 (Version 1)
Quarter: 2022Q1

REPORT INFORMATION
  Report Type: Spontaneous
  Country: US (occurrence: None)
  Receive Date: 20220310
  Receipt Date: 20220310
  Transmission Date: 20220424
  Serious: Yes (Hospitalization)
  Sender: FDA-Public Use
  Company Number: None

PATIENT
  Sex: Female

DRUGS (3)
  1. REPATHA [Suspect]
     Active Substance: EVOLOCUMAB
     Indication: Spinal osteoarthritis
     Route: 058
     Dates: start: 20180621
  2. HYDROCODONE POW BITARTRA [Concomitant]
  3. IRON TAB 27MG [Concomitant]

REACTIONS (1)
  - Therapy interrupted [None]
